FAERS Safety Report 10731193 (Version 1)
Quarter: 2015Q1

REPORT INFORMATION
  Report Type: Spontaneous
  Country: ES (occurrence: ES)
  Receive Date: 20150122
  Receipt Date: 20150122
  Transmission Date: 20150721
  Serious: Yes (Other)
  Sender: FDA-Public Use
  Company Number: ES-MYLANLABS-2015M1000093

PATIENT

DRUGS (1)
  1. ISOTRETINOIN [Suspect]
     Active Substance: ISOTRETINOIN
     Indication: ACNE
     Dosage: 20 MG, QD
     Route: 048
     Dates: start: 20081101, end: 20090630

REACTIONS (6)
  - Myalgia [Unknown]
  - Tendon pain [Not Recovered/Not Resolved]
  - Back pain [Not Recovered/Not Resolved]
  - Rectal haemorrhage [Not Recovered/Not Resolved]
  - Arthralgia [Not Recovered/Not Resolved]
  - Anal fissure [Unknown]

NARRATIVE: CASE EVENT DATE: 20081117
